FAERS Safety Report 12842033 (Version 1)
Quarter: 2016Q4

REPORT INFORMATION
  Report Type: Spontaneous
  Country: US (occurrence: US)
  Receive Date: 20161012
  Receipt Date: 20161012
  Transmission Date: 20170207
  Serious: Yes (Other)
  Sender: FDA-Public Use
  Company Number: US-AMGEN-USASP2016139053

PATIENT
  Age: 70 Year
  Sex: Male
  Weight: 82.86 kg

DRUGS (3)
  1. VIDAZA [Suspect]
     Active Substance: AZACITIDINE
     Dosage: 50 UNIT, 3 CONSECUTIVE DAYS
     Route: 065
  2. PROCRIT [Suspect]
     Active Substance: ERYTHROPOIETIN
     Indication: MYELODYSPLASTIC SYNDROME
     Dosage: 60000 UNIT, UNK
     Route: 058
     Dates: start: 2009
  3. VIDAZA [Suspect]
     Active Substance: AZACITIDINE
     Indication: PRODUCT USED FOR UNKNOWN INDICATION
     Dosage: 100 UNIT, FOR FIVE CONSECUTIVE DAYS
     Route: 065

REACTIONS (11)
  - Iron overload [Recovered/Resolved]
  - Impaired quality of life [Not Recovered/Not Resolved]
  - Blood urea increased [Recovering/Resolving]
  - Lymphadenopathy [Recovered/Resolved]
  - Blood creatinine increased [Recovering/Resolving]
  - Bladder cancer [Recovered/Resolved]
  - Prostate cancer [Recovered/Resolved]
  - Neutrophil count decreased [Unknown]
  - Weight decreased [Recovered/Resolved]
  - Serum ferritin abnormal [Not Recovered/Not Resolved]
  - Haemoglobin decreased [Not Recovered/Not Resolved]

NARRATIVE: CASE EVENT DATE: 201310
